FAERS Safety Report 14947875 (Version 1)
Quarter: 2018Q2

REPORT INFORMATION
  Report Type: Spontaneous
  Country: US (occurrence: US)
  Receive Date: 20180529
  Receipt Date: 20180529
  Transmission Date: 20180711
  Serious: No
  Sender: FDA-Public Use
  Company Number: US-BEH-2018091011

PATIENT
  Sex: Female
  Weight: 56.24 kg

DRUGS (15)
  1. FLONASE [Concomitant]
     Active Substance: FLUTICASONE PROPIONATE
  2. LMX                                /00033401/ [Concomitant]
  3. CLOFAZIMINE [Concomitant]
     Active Substance: CLOFAZIMINE
  4. HEPARIN [Concomitant]
     Active Substance: HEPARIN SODIUM
  5. AMBIEN [Concomitant]
     Active Substance: ZOLPIDEM TARTRATE
  6. PROAIR HFA [Concomitant]
     Active Substance: ALBUTEROL SULFATE
  7. ZEMAIRA [Suspect]
     Active Substance: .ALPHA.1-PROTEINASE INHIBITOR HUMAN
     Indication: ALPHA-1 ANTI-TRYPSIN DEFICIENCY
     Dosage: 60 MG/KG, QW
     Route: 042
     Dates: start: 20180430
  8. NEURONTIN [Concomitant]
     Active Substance: GABAPENTIN
  9. ZEMAIRA [Suspect]
     Active Substance: .ALPHA.1-PROTEINASE INHIBITOR HUMAN
     Dosage: 60 MG/KG, TOT
     Route: 042
  10. AZITHROMYCIN ANHYDROUS. [Concomitant]
     Active Substance: AZITHROMYCIN ANHYDROUS
  11. OXYCODONE AND ACETAMINOPHEN [Concomitant]
     Active Substance: ACETAMINOPHEN\OXYCODONE HYDROCHLORIDE
  12. SODIUM CHLORIDE. [Concomitant]
     Active Substance: SODIUM CHLORIDE
  13. EPINEPHRINE. [Concomitant]
     Active Substance: EPINEPHRINE
  14. DIPHENHYDRAMINE. [Concomitant]
     Active Substance: DIPHENHYDRAMINE
  15. LEXAPRO [Concomitant]
     Active Substance: ESCITALOPRAM OXALATE

REACTIONS (3)
  - Pruritus [Unknown]
  - Hypotension [Unknown]
  - Dizziness [Unknown]
